FAERS Safety Report 8617292 (Version 2)
Quarter: 2013Q3

REPORT INFORMATION
  Report Type: Report from Study
  Country: JP (occurrence: JP)
  Receive Date: 20120615
  Receipt Date: 20130725
  Transmission Date: 20140515
  Serious: Yes (Death, Other)
  Sender: FDA-Public Use
  Company Number: PHHY2012JP018368

PATIENT
  Age: 77 Year
  Sex: Male
  Weight: 46 kg

DRUGS (7)
  1. AFINITOR [Suspect]
     Indication: METASTATIC RENAL CELL CARCINOMA
     Dosage: 10 MG, DAILY
     Route: 048
     Dates: start: 20110908, end: 20111006
  2. THYRADIN [Concomitant]
     Dosage: 100 UG, UNK
     Route: 048
  3. DECADRON [Concomitant]
     Dosage: 1 MG, UNK
     Route: 048
  4. ADALAT L [Concomitant]
     Dosage: 10 MG, UNK
     Route: 048
  5. FERROMIA [Concomitant]
     Dosage: 200 MG, UNK
     Route: 048
  6. ALESION [Concomitant]
     Dosage: 20 MG, UNK
     Route: 048
  7. MAGMITT [Concomitant]
     Dosage: 750 MG, UNK
     Route: 048

REACTIONS (4)
  - Interstitial lung disease [Unknown]
  - Pyrexia [Unknown]
  - Metastatic renal cell carcinoma [Fatal]
  - Malignant neoplasm progression [Fatal]
